FAERS Safety Report 7913134-1 (Version None)
Quarter: 2011Q4

REPORT INFORMATION
  Report Type: 
  Country: None (occurrence: None)
  Receive Date: 20111114
  Receipt Date: 20111031
  Transmission Date: 20120403
  Serious: Yes (Hospitalization)
  Sender: FDA-Public Use
  Company Number: US-ELI_LILLY_AND_COMPANY-US201111001799

PATIENT
  Sex: Female

DRUGS (1)
  1. FORTEO [Suspect]
     Dosage: UNK, UNKNOWN

REACTIONS (5)
  - ASTHENIA [None]
  - CONFUSIONAL STATE [None]
  - SOMNOLENCE [None]
  - FATIGUE [None]
  - BLOOD PRESSURE INCREASED [None]
